FAERS Safety Report 9477186 (Version 1)
Quarter: 2013Q3

REPORT INFORMATION
  Report Type: Not Available
  Country: US (occurrence: US)
  Receive Date: 20130826
  Receipt Date: 20130826
  Transmission Date: 20140515
  Serious: No
  Sender: FDA-Public Use
  Company Number: US-AMARIN PHARMA, INC.-2013AMR000037

PATIENT
  Age: 87 Year
  Sex: Male

DRUGS (3)
  1. VASCEPA [Suspect]
     Indication: BLOOD TRIGLYCERIDES INCREASED
     Route: 065
     Dates: start: 20130711
  2. PLAVIX [Concomitant]
     Indication: PRODUCT USED FOR UNKNOWN INDICATION
     Route: 065
  3. LOSARTAN [Concomitant]
     Indication: PRODUCT USED FOR UNKNOWN INDICATION
     Route: 065

REACTIONS (1)
  - Eye irritation [Recovered/Resolved]
